FAERS Safety Report 6269596-1 (Version None)
Quarter: 2009Q3

REPORT INFORMATION
  Report Type: 
  Country: None (occurrence: None)
  Receive Date: 20090714
  Receipt Date: 20090701
  Transmission Date: 20100115
  Serious: Yes (Other)
  Sender: FDA-Public Use
  Company Number: 2009-200066-NL

PATIENT
  Age: 37 Year
  Sex: Female
  Weight: 76.2 kg

DRUGS (1)
  1. NUVARING [Suspect]
     Dates: start: 20080101

REACTIONS (2)
  - LIP SWELLING [None]
  - RASH [None]
